FAERS Safety Report 17577751 (Version 4)
Quarter: 2021Q1

REPORT INFORMATION
  Report Type: Spontaneous
  Country: US (occurrence: US)
  Receive Date: 20200324
  Receipt Date: 20210322
  Transmission Date: 20210419
  Serious: No
  Sender: FDA-Public Use
  Company Number: US-SHIRE-US202011024

PATIENT
  Sex: Male
  Weight: 103 kg

DRUGS (12)
  1. GATTEX [Suspect]
     Active Substance: TEDUGLUTIDE\WATER
     Indication: CROHN^S DISEASE
     Dosage: 0.2570 (UNIT UNKNOWN), 1X/DAY:QD
     Route: 058
     Dates: start: 20200224
  2. GATTEX [Suspect]
     Active Substance: TEDUGLUTIDE\WATER
     Indication: CROHN^S DISEASE
     Dosage: 0.2570 (UNIT UNKNOWN), 1X/DAY:QD
     Route: 058
     Dates: start: 20200224
  3. GATTEX [Suspect]
     Active Substance: TEDUGLUTIDE\WATER
     Indication: CROHN^S DISEASE
     Dosage: 0.2570 (UNIT UNKNOWN), 1X/DAY:QD
     Route: 058
     Dates: start: 20200224
  4. GATTEX [Suspect]
     Active Substance: TEDUGLUTIDE\WATER
     Indication: CROHN^S DISEASE
     Dosage: 0.2570 (UNIT UNKNOWN), 1X/DAY:QD
     Route: 058
     Dates: start: 20200224
  5. GATTEX [Suspect]
     Active Substance: TEDUGLUTIDE\WATER
     Dosage: 0.26 MILLILITER, QD
     Route: 058
  6. GATTEX [Suspect]
     Active Substance: TEDUGLUTIDE\WATER
     Dosage: 0.26 MILLILITER, QD
     Route: 058
  7. GATTEX [Suspect]
     Active Substance: TEDUGLUTIDE\WATER
     Dosage: 2.6 MILLIGRAM, QD
     Route: 058
     Dates: start: 2020
  8. GATTEX [Suspect]
     Active Substance: TEDUGLUTIDE\WATER
     Dosage: 0.26 MILLILITER, QD
     Route: 058
  9. GATTEX [Suspect]
     Active Substance: TEDUGLUTIDE\WATER
     Dosage: 2.6 MILLIGRAM, QD
     Route: 058
     Dates: start: 2020
  10. GATTEX [Suspect]
     Active Substance: TEDUGLUTIDE\WATER
     Dosage: 2.6 MILLIGRAM, QD
     Route: 058
     Dates: start: 2020
  11. GATTEX [Suspect]
     Active Substance: TEDUGLUTIDE\WATER
     Dosage: 0.26 MILLILITER, QD
     Route: 058
  12. GATTEX [Suspect]
     Active Substance: TEDUGLUTIDE\WATER
     Dosage: 2.6 MILLIGRAM, QD
     Route: 058
     Dates: start: 2020

REACTIONS (5)
  - Device leakage [Not Recovered/Not Resolved]
  - Product dose omission issue [Unknown]
  - Stoma complication [Unknown]
  - Inappropriate schedule of product administration [Recovered/Resolved]
  - Insurance issue [Recovered/Resolved]
